FAERS Safety Report 23707984 (Version 1)
Quarter: 2024Q2

REPORT INFORMATION
  Report Type: Spontaneous
  Country: PL (occurrence: PL)
  Receive Date: 20240404
  Receipt Date: 20240404
  Transmission Date: 20240715
  Serious: Yes (Hospitalization, Other)
  Sender: FDA-Public Use
  Company Number: PL-NOVPHSZ-PHHY2019PL202011

PATIENT
  Age: 52 Year
  Sex: Female

DRUGS (3)
  1. DOXORUBICIN [Suspect]
     Active Substance: DOXORUBICIN
     Indication: Breast cancer
     Dosage: UNK
     Route: 065
  2. CYCLOPHOSPHAMIDE [Suspect]
     Active Substance: CYCLOPHOSPHAMIDE
     Indication: Breast cancer
     Route: 065
  3. DOCETAXEL [Suspect]
     Active Substance: DOCETAXEL\DOCETAXEL ANHYDROUS
     Indication: Breast cancer
     Dosage: UNK
     Route: 065

REACTIONS (8)
  - Graft versus host disease [Unknown]
  - Second primary malignancy [Recovered/Resolved]
  - Myelodysplastic syndrome [Recovered/Resolved]
  - Cytomegalovirus infection [Unknown]
  - Bronchopulmonary aspergillosis [Unknown]
  - Granulocytopenia [Unknown]
  - Thrombocytopenia [Unknown]
  - Anaemia [Unknown]
